FAERS Safety Report 9668354 (Version 1)
Quarter: 2013Q4

REPORT INFORMATION
  Report Type: Spontaneous
  Country: CN (occurrence: CN)
  Receive Date: 20131104
  Receipt Date: 20131104
  Transmission Date: 20140711
  Serious: Yes (Other)
  Sender: FDA-Public Use
  Company Number: CN-GILEAD-2013-0086926

PATIENT
  Age: 66 Year
  Sex: Male

DRUGS (10)
  1. TENOFOVIR DISOPROXIL FUMARATE [Suspect]
     Indication: HIV INFECTION
     Dosage: UNK
     Dates: end: 20111224
  2. TENOFOVIR DISOPROXIL FUMARATE [Suspect]
     Indication: HEPATITIS B
  3. ADEFOVIR DIPIVOXIL [Concomitant]
     Indication: HEPATITIS B
     Dosage: 1 DF, QD
     Route: 048
     Dates: start: 20111224, end: 20111226
  4. LAMIVUDINE [Concomitant]
     Indication: HEPATITIS B
     Dosage: UNK
     Dates: end: 20111224
  5. LAMIVUDINE [Concomitant]
     Indication: HIV INFECTION
     Dosage: UNK
     Dates: start: 20120106
  6. EFAVIRENZ [Concomitant]
     Indication: HIV INFECTION
     Dosage: UNK
     Dates: end: 20111224
  7. RALTEGRAVIR POTASSIUM [Concomitant]
     Indication: HIV INFECTION
     Dosage: UNK
     Dates: end: 20111224
  8. ENTECAVIR [Concomitant]
     Indication: HEPATITIS B
     Dosage: UNK
     Dates: start: 20121227
  9. STAVUDINE [Concomitant]
     Indication: HIV INFECTION
     Dosage: UNK
     Dates: start: 20120106
  10. EFAVIRDINE [Concomitant]
     Indication: HIV INFECTION
     Dosage: UNK
     Dates: start: 20120106

REACTIONS (7)
  - Asphyxia [Recovered/Resolved]
  - Unevaluable event [Unknown]
  - Nasal congestion [Unknown]
  - Abnormal dreams [Unknown]
  - Poor quality sleep [Unknown]
  - Dizziness [Unknown]
  - Dyspnoea [Recovered/Resolved]
